FAERS Safety Report 9462746 (Version 1)
Quarter: 2013Q3

REPORT INFORMATION
  Report Type: Spontaneous
  Country: FR (occurrence: FR)
  Receive Date: 20130816
  Receipt Date: 20130816
  Transmission Date: 20140515
  Serious: Yes (Hospitalization, Other)
  Sender: FDA-Public Use
  Company Number: FR-ABBOTT-13P-056-1130759-00

PATIENT
  Age: 27 Year
  Sex: Male

DRUGS (4)
  1. HUMIRA [Suspect]
     Indication: ANKYLOSING SPONDYLITIS
     Route: 058
     Dates: start: 20130528
  2. ENBREL [Suspect]
     Indication: ANKYLOSING SPONDYLITIS
     Route: 058
     Dates: start: 201301, end: 20130523
  3. BIPROFENID [Suspect]
     Indication: PRODUCT USED FOR UNKNOWN INDICATION
     Route: 048
     Dates: start: 20130523
  4. ORAMORPH [Concomitant]
     Indication: PRODUCT USED FOR UNKNOWN INDICATION

REACTIONS (13)
  - Dysphagia [Unknown]
  - Oropharyngeal pain [Recovered/Resolved]
  - Nausea [Unknown]
  - Odynophagia [Unknown]
  - Chills [Unknown]
  - Dyspnoea [Unknown]
  - Trismus [Unknown]
  - Pyrexia [Unknown]
  - Tonsillar ulcer [Unknown]
  - Pharyngeal erythema [Unknown]
  - Pharyngeal oedema [Unknown]
  - Pharyngeal necrosis [Unknown]
  - Pharyngeal exudate [Unknown]
